FAERS Safety Report 9234090 (Version 1)
Quarter: 2013Q2

REPORT INFORMATION
  Report Type: Spontaneous
  Country: JP (occurrence: JP)
  Receive Date: 20130416
  Receipt Date: 20130416
  Transmission Date: 20140414
  Serious: Yes (Death)
  Sender: FDA-Public Use
  Company Number: JP-PFIZER INC-2013115334

PATIENT
  Age: 62 Year
  Sex: Female

DRUGS (6)
  1. METHYLPREDNISOLONE SODIUM SUCCINATE [Suspect]
     Indication: PROPHYLAXIS AGAINST GRAFT VERSUS HOST DISEASE
     Dosage: 1 MG/KG, UNK
  2. FLUDARABINE [Concomitant]
     Indication: PREOPERATIVE CARE
     Dosage: 30 MG/M2, FOR 6 DAYS
  3. BUSULFAN [Concomitant]
     Indication: PREOPERATIVE CARE
     Dosage: 3.2 MG/KG, FOR 2 DAYS
     Route: 041
  4. THYMOGLOBULINE [Concomitant]
     Indication: PREOPERATIVE CARE
     Dosage: 1 MG/KG, FOR 2 DAYS
  5. VORICONAZOLE [Concomitant]
     Indication: ANTIFUNGAL PROPHYLAXIS
     Dosage: 400 MG, 1X/DAY
     Route: 048
  6. TACROLIMUS [Concomitant]
     Indication: PROPHYLAXIS AGAINST GRAFT VERSUS HOST DISEASE
     Dosage: TARGETED BLOOD CONCENTRATION 15 NG/ML

REACTIONS (1)
  - Zygomycosis [Fatal]
